FAERS Safety Report 10064938 (Version 1)
Quarter: 2014Q2

REPORT INFORMATION
  Report Type: Spontaneous
  Country: US (occurrence: US)
  Receive Date: 20140408
  Receipt Date: 20140408
  Transmission Date: 20141212
  Serious: No
  Sender: FDA-Public Use
  Company Number: US-TEVA-474372USA

PATIENT
  Sex: Female
  Weight: 63.56 kg

DRUGS (3)
  1. PLAN B ONE-STEP [Suspect]
     Indication: POST COITAL CONTRACEPTION
     Dosage: 1.5 MILLIGRAM DAILY;
     Route: 048
  2. METHADONE [Concomitant]
     Indication: DRUG DEPENDENCE
  3. XANAX [Concomitant]
     Indication: ANXIETY

REACTIONS (3)
  - Human chorionic gonadotropin increased [Unknown]
  - Pelvic pain [Recovered/Resolved]
  - Vomiting [Recovered/Resolved]
